APPROVED DRUG PRODUCT: CISPLATIN
Active Ingredient: CISPLATIN
Strength: 1MG/ML
Dosage Form/Route: INJECTABLE;INJECTION
Application: A206774 | Product #001 | TE Code: AP
Applicant: ACCORD HEALTHCARE INC
Approved: Aug 18, 2015 | RLD: No | RS: No | Type: RX